FAERS Safety Report 22530055 (Version 1)
Quarter: 2023Q2

REPORT INFORMATION
  Report Type: Spontaneous
  Country: US (occurrence: US)
  Receive Date: 20230607
  Receipt Date: 20230607
  Transmission Date: 20230721
  Serious: No
  Sender: FDA-Public Use
  Company Number: US-MAYNE PHARMA-2023MYN000428

PATIENT

DRUGS (1)
  1. DORYX [Suspect]
     Active Substance: DOXYCYCLINE HYCLATE
     Indication: Rosacea
     Dosage: 50 MG, QD
     Route: 048
     Dates: start: 20230307, end: 20230308

REACTIONS (5)
  - Swelling face [Recovering/Resolving]
  - Eye swelling [Unknown]
  - Erythema [Unknown]
  - Dark circles under eyes [Unknown]
  - Headache [Unknown]

NARRATIVE: CASE EVENT DATE: 20230307
